FAERS Safety Report 11768003 (Version 1)
Quarter: 2015Q4

REPORT INFORMATION
  Report Type: Spontaneous
  Country: US (occurrence: US)
  Receive Date: 20151123
  Receipt Date: 20151123
  Transmission Date: 20160304
  Serious: No
  Sender: FDA-Public Use
  Company Number: US-JNJFOC-20150915906

PATIENT
  Age: 24 Year
  Sex: Male
  Weight: 72.58 kg

DRUGS (4)
  1. MULTIVITAMINS [Concomitant]
     Active Substance: VITAMINS
     Indication: NUTRITIONAL SUPPLEMENTATION
     Route: 065
  2. ZYRTEC 10MG IR TABLET [Suspect]
     Active Substance: CETIRIZINE HYDROCHLORIDE
     Indication: SEASONAL ALLERGY
     Route: 048
  3. ZYRTEC 10MG IR TABLET [Suspect]
     Active Substance: CETIRIZINE HYDROCHLORIDE
     Route: 048
  4. CALCIUM [Concomitant]
     Active Substance: CALCIUM
     Indication: NUTRITIONAL SUPPLEMENTATION
     Route: 065

REACTIONS (2)
  - Somnolence [Recovered/Resolved]
  - Fatigue [Recovered/Resolved]
